FAERS Safety Report 4368986-1 (Version None)
Quarter: 2004Q2

REPORT INFORMATION
  Report Type: 
  Country: None (occurrence: None)
  Receive Date: 20040602
  Receipt Date: 20040602
  Transmission Date: 20050107
  Serious: Yes (Other)
  Sender: FDA-Public Use
  Company Number: None

PATIENT
  Age: 9 Year
  Sex: Male
  Weight: 22.2263 kg

DRUGS (2)
  1. DEFEROXAMINE 500 MG [Suspect]
     Indication: SIDEROBLASTIC ANAEMIA
     Dosage: }700 MG SQ 5X /WK
     Route: 058
     Dates: start: 20040519
  2. DEFEROXAMINE 2000 MG [Suspect]

REACTIONS (5)
  - INJECTION SITE ERYTHEMA [None]
  - INJECTION SITE REACTION [None]
  - INJECTION SITE SWELLING [None]
  - PHARMACEUTICAL PRODUCT COMPLAINT [None]
  - PILOERECTION [None]
